FAERS Safety Report 9174746 (Version 2)
Quarter: 2013Q1

REPORT INFORMATION
  Report Type: Spontaneous
  Country: JP (occurrence: None)
  Receive Date: 20130315
  Receipt Date: 20130327
  Transmission Date: 20140127
  Serious: Yes (Life-Threatening)
  Sender: FDA-Public Use
  Company Number: TCI2013A01398

PATIENT
  Age: 88 Year
  Sex: Female

DRUGS (7)
  1. ROZEREM TABLETS 8MG (RAMELTEON) [Suspect]
     Indication: PRODUCT USED FOR UNKNOWN INDICATION
     Route: 048
     Dates: start: 20130212
  2. REMINYL (GALANTAMINE HYDROBROMIDE) [Suspect]
     Indication: DEMENTIA
     Dosage: 8 DAYS?
     Route: 048
     Dates: start: 20130212, end: 20130220
  3. MEMARY (MEMANTINE HYDROCHLORIDE) [Suspect]
     Indication: DEMENTIA
     Dosage: 5 MG (5 MG, 1 D)?
     Route: 048
     Dates: start: 20130126, end: 20130220
  4. SERENACE (HALOPERIDOL) [Suspect]
     Dates: start: 20130212, end: 20130220
  5. CEROCRAL (IFENPRODIL TARTRATE) [Concomitant]
     Route: 048
  6. TAGAMET (CIMETIDINE) [Concomitant]
  7. AMLODIN (AMLODIPINE BESILATE) [Concomitant]

REACTIONS (5)
  - Coma [None]
  - Dehydration [None]
  - Blood pressure decreased [None]
  - Decreased appetite [None]
  - Pain [None]
